FAERS Safety Report 10045137 (Version 4)
Quarter: 2014Q2

REPORT INFORMATION
  Report Type: Spontaneous
  Country: US (occurrence: US)
  Receive Date: 20140328
  Receipt Date: 20140513
  Transmission Date: 20141212
  Serious: Yes (Other)
  Sender: FDA-Public Use
  Company Number: US-PFIZER INC-2014087653

PATIENT
  Age: 61 Year
  Sex: Male
  Weight: 126.08 kg

DRUGS (3)
  1. ATORVASTATIN CALCIUM [Suspect]
     Dosage: ONCE
     Dates: start: 201401, end: 201401
  2. ATORVASTATIN CALCIUM [Suspect]
     Dosage: UNK
  3. GLUMETZA [Concomitant]
     Indication: DIABETES MELLITUS
     Dosage: 500 MG, 4X/DAY

REACTIONS (7)
  - Haemorrhage [Unknown]
  - Diarrhoea [Unknown]
  - Dyspepsia [Unknown]
  - Blood glucose increased [Unknown]
  - Dizziness [Unknown]
  - Feeling abnormal [Unknown]
  - Malaise [Unknown]
